FAERS Safety Report 5474567-9 (Version None)
Quarter: 2007Q4

REPORT INFORMATION
  Report Type: 
  Country: None (occurrence: None)
  Receive Date: 20071002
  Receipt Date: 20070927
  Transmission Date: 20080405
  Serious: Yes (Hospitalization)
  Sender: FDA-Public Use
  Company Number: US-AMGEN-US245166

PATIENT
  Sex: Female
  Weight: 134.4 kg

DRUGS (6)
  1. ARANESP [Suspect]
     Indication: ANAEMIA OF MALIGNANT DISEASE
     Route: 058
     Dates: start: 20041123, end: 20050125
  2. CARBOPLATIN [Concomitant]
     Route: 065
  3. HERCEPTIN [Concomitant]
     Route: 065
  4. LASIX [Concomitant]
     Route: 065
  5. POTASSIUM CHLORIDE [Concomitant]
     Route: 065
  6. TAXOL [Concomitant]
     Route: 065

REACTIONS (9)
  - FATIGUE [None]
  - HAEMOPTYSIS [None]
  - HERPES ZOSTER [None]
  - LUNG INFILTRATION [None]
  - PLEURAL EFFUSION [None]
  - PLEURISY [None]
  - PNEUMONIA [None]
  - PULMONARY EMBOLISM [None]
  - PYREXIA [None]
